FAERS Safety Report 7801591-0 (Version None)
Quarter: 2011Q4

REPORT INFORMATION
  Report Type: 
  Country: None (occurrence: None)
  Receive Date: 20111006
  Receipt Date: 20111006
  Transmission Date: 20120403
  Serious: Yes (Hospitalization)
  Sender: FDA-Public Use
  Company Number: None

PATIENT
  Age: 84 Year
  Sex: Female
  Weight: 40.7 kg

DRUGS (19)
  1. XALATAN [Concomitant]
  2. FORTICAL [Concomitant]
  3. LISPRO INSULIN [Concomitant]
  4. LISINOPRIL [Concomitant]
  5. PRIMIDONE [Concomitant]
  6. HYDROLAZINE [Concomitant]
  7. DIGOXIN [Suspect]
     Indication: CORONARY ARTERY DISEASE
     Dosage: 0.125 MG EOD PO CHRONIC
     Route: 048
  8. DORZOLAMIDE HYDROCHLORIDE AND TIMOLOL MALEATE [Concomitant]
  9. ALLOPURINOL [Concomitant]
  10. BUMEX [Concomitant]
  11. BRIMONIDINE TARTRATE [Concomitant]
  12. BUPRIONE XL [Concomitant]
  13. BISARONDYL [Concomitant]
  14. ASPIRIN [Concomitant]
  15. IVAS HYDROXIL [Concomitant]
  16. DOUNEB [Concomitant]
  17. COLACE [Concomitant]
  18. COREG [Concomitant]
  19. PROTONIX [Concomitant]

REACTIONS (4)
  - DEHYDRATION [None]
  - ACUTE PRERENAL FAILURE [None]
  - CARDIOACTIVE DRUG LEVEL ABOVE THERAPEUTIC [None]
  - RENAL FAILURE ACUTE [None]
